FAERS Safety Report 19019175 (Version 6)
Quarter: 2024Q3

REPORT INFORMATION
  Report Type: Report from Study
  Country: CA (occurrence: CA)
  Receive Date: 20210317
  Receipt Date: 20240820
  Transmission Date: 20241017
  Serious: Yes (Other)
  Sender: TAKEDA
  Company Number: CA-TAKEDA-2021TUS015360

PATIENT
  Age: 65 Year
  Sex: Female

DRUGS (5)
  1. VEDOLIZUMAB [Suspect]
     Active Substance: VEDOLIZUMAB
     Indication: Colitis ulcerative
     Dosage: 300 MILLIGRAM
     Route: 042
     Dates: start: 20191211
  2. VEDOLIZUMAB [Suspect]
     Active Substance: VEDOLIZUMAB
     Dosage: 300 MILLIGRAM, Q4WEEKS
     Route: 042
     Dates: start: 20240818
  3. PENTASA [Concomitant]
     Active Substance: MESALAMINE
     Dosage: UNK
     Route: 048
  4. PENTASA [Concomitant]
     Active Substance: MESALAMINE
     Dosage: UNK
  5. POTASSIUM [Concomitant]
     Active Substance: POTASSIUM
     Dosage: UNK

REACTIONS (2)
  - Colitis ulcerative [Not Recovered/Not Resolved]
  - Off label use [Unknown]

NARRATIVE: CASE EVENT DATE: 20240818
